FAERS Safety Report 9204003 (Version 1)
Quarter: 2013Q1

REPORT INFORMATION
  Report Type: Spontaneous
  Country: US (occurrence: None)
  Receive Date: 20120709
  Receipt Date: 20120709
  Transmission Date: 20140127
  Serious: No
  Sender: FDA-Public Use
  Company Number: 2012HGS-003420

PATIENT
  Age: 25 Year
  Sex: Female
  Weight: 68.95 kg

DRUGS (2)
  1. BENLYSTA [Suspect]
     Indication: SYSTEMIC LUPUS ERYTHEMATOSUS
     Dosage: 1 IN 14 D
     Route: 041
  2. PREDNISONE (PREDNISONE) (PREDNISONE) [Concomitant]

REACTIONS (1)
  - Oropharyngeal pain [None]
